FAERS Safety Report 9168614 (Version 1)
Quarter: 2013Q1

REPORT INFORMATION
  Report Type: Spontaneous
  Country: US (occurrence: US)
  Receive Date: 20130318
  Receipt Date: 20130318
  Transmission Date: 20140127
  Serious: Yes (Other)
  Sender: FDA-Public Use
  Company Number: US-BAYER-2013-031038

PATIENT
  Age: 38 Year
  Sex: Female
  Weight: 49.89 kg

DRUGS (1)
  1. ALKA-SELTZER PLUS COLD FORMULA [Suspect]
     Indication: NASOPHARYNGITIS
     Dosage: 2 DF, Q4HR
     Route: 048
     Dates: start: 20130307

REACTIONS (8)
  - Aphagia [Not Recovered/Not Resolved]
  - Swollen tongue [Not Recovered/Not Resolved]
  - Lip swelling [Not Recovered/Not Resolved]
  - Lip disorder [None]
  - Tongue discolouration [Not Recovered/Not Resolved]
  - Glossodynia [Not Recovered/Not Resolved]
  - Incorrect dose administered [None]
  - Tongue discolouration [None]
